FAERS Safety Report 16858545 (Version 4)
Quarter: 2024Q1

REPORT INFORMATION
  Report Type: Spontaneous
  Country: US (occurrence: US)
  Receive Date: 20190926
  Receipt Date: 20240122
  Transmission Date: 20240409
  Serious: Yes (Other)
  Sender: FDA-Public Use
  Company Number: US-GILEAD-2019-0429322

PATIENT
  Age: 52 Year
  Sex: Female
  Weight: 72.562 kg

DRUGS (39)
  1. ATRIPLA [Suspect]
     Active Substance: EFAVIRENZ\EMTRICITABINE\TENOFOVIR DISOPROXIL FUMARATE
     Indication: HIV infection
     Dosage: UNK
     Route: 048
     Dates: start: 200802, end: 20181108
  2. TRUVADA [Suspect]
     Active Substance: EMTRICITABINE\TENOFOVIR DISOPROXIL FUMARATE
     Indication: Product used for unknown indication
     Dosage: UNK
     Route: 048
     Dates: start: 2018
  3. GENVOYA [Concomitant]
     Active Substance: COBICISTAT\ELVITEGRAVIR\EMTRICITABINE\TENOFOVIR ALAFENAMIDE FUMARATE
  4. BIKTARVY [Concomitant]
     Active Substance: BICTEGRAVIR SODIUM\EMTRICITABINE\TENOFOVIR ALAFENAMIDE FUMARATE
  5. METOCLOPRAMIDE [Concomitant]
     Active Substance: METOCLOPRAMIDE
  6. ADVAIR HFA [Concomitant]
     Active Substance: FLUTICASONE PROPIONATE\SALMETEROL XINAFOATE
  7. ALBUTEROL [Concomitant]
     Active Substance: ALBUTEROL
  8. AMITRIPTYLINE HYDROCHLORIDE [Concomitant]
     Active Substance: AMITRIPTYLINE HYDROCHLORIDE
  9. AVELOX [Concomitant]
     Active Substance: MOXIFLOXACIN HYDROCHLORIDE
  10. AZITHROMYCIN [Concomitant]
     Active Substance: AZITHROMYCIN
  11. BENZONATATE [Concomitant]
     Active Substance: BENZONATATE
  12. BUPROPION [Concomitant]
     Active Substance: BUPROPION
  13. CEPHALEXIN [Concomitant]
     Active Substance: CEPHALEXIN
  14. CIPROFLOXACIN [Concomitant]
     Active Substance: CIPROFLOXACIN
  15. CYCLOBENZAPRINE [Concomitant]
     Active Substance: CYCLOBENZAPRINE
  16. DIAZEPAM [Concomitant]
     Active Substance: DIAZEPAM
  17. FLUCONAZOLE [Concomitant]
     Active Substance: FLUCONAZOLE
  18. FLUTICASONE [Concomitant]
     Active Substance: FLUTICASONE
  19. GABAPENTIN [Concomitant]
     Active Substance: GABAPENTIN
  20. GAVILYTE G [Concomitant]
     Active Substance: POLYETHYLENE GLYCOL 3350\POTASSIUM CHLORIDE\SODIUM BICARBONATE\SODIUM CHLORIDE\SODIUM SULFATE
  21. HYDROMORPHONE [Concomitant]
     Active Substance: HYDROMORPHONE
  22. IBUPROFEN [Concomitant]
     Active Substance: IBUPROFEN
  23. METHYLPREDNISOLONE [Concomitant]
     Active Substance: METHYLPREDNISOLONE
  24. MIRTAZAPINE [Concomitant]
     Active Substance: MIRTAZAPINE
  25. NITROFURANTOIN [Concomitant]
     Active Substance: NITROFURANTOIN
  26. NYSTATIN [Concomitant]
     Active Substance: NYSTATIN
  27. OMEPRAZOLE [Concomitant]
     Active Substance: OMEPRAZOLE
  28. ONDANSETRON [Concomitant]
     Active Substance: ONDANSETRON
  29. OXYCODONE [Concomitant]
     Active Substance: OXYCODONE
  30. PENICILLIN V POTASSIUM [Concomitant]
     Active Substance: PENICILLIN V POTASSIUM
  31. POLYETHYLENE GLYCOLS [Concomitant]
     Active Substance: POLYETHYLENE GLYCOLS
  32. PREDNISONE [Concomitant]
     Active Substance: PREDNISONE
  33. PROAIR HFA [Concomitant]
     Active Substance: ALBUTEROL SULFATE
  34. PROMETHAZINE [Concomitant]
     Active Substance: PROMETHAZINE HYDROCHLORIDE
  35. RANITIDINE [Concomitant]
     Active Substance: RANITIDINE
  36. SENNA PLUS [SENNA ALEXANDRINA] [Concomitant]
  37. SPIRIVA [Concomitant]
     Active Substance: TIOTROPIUM BROMIDE MONOHYDRATE
  38. SULFAMETHOXAZOLE [Concomitant]
     Active Substance: SULFAMETHOXAZOLE
  39. VENTOLIN [Concomitant]
     Active Substance: ALBUTEROL SULFATE

REACTIONS (14)
  - Renal impairment [Unknown]
  - Chronic kidney disease [Not Recovered/Not Resolved]
  - Foot fracture [Not Recovered/Not Resolved]
  - Blood creatinine increased [Unknown]
  - Osteoporosis [Not Recovered/Not Resolved]
  - Emotional distress [Not Recovered/Not Resolved]
  - Loss of personal independence in daily activities [Not Recovered/Not Resolved]
  - Quality of life decreased [Not Recovered/Not Resolved]
  - Economic problem [Not Recovered/Not Resolved]
  - Anhedonia [Not Recovered/Not Resolved]
  - Anxiety [Not Recovered/Not Resolved]
  - Pain [Not Recovered/Not Resolved]
  - Fatigue [Unknown]
  - Depression [Not Recovered/Not Resolved]

NARRATIVE: CASE EVENT DATE: 20080101
